FAERS Safety Report 7011749-9 (Version None)
Quarter: 2010Q3

REPORT INFORMATION
  Report Type: 
  Country: None (occurrence: None)
  Receive Date: 20100923
  Receipt Date: 20090526
  Transmission Date: 20110219
  Serious: Yes (Other)
  Sender: FDA-Public Use
  Company Number: US-WYE-H09473009

PATIENT
  Sex: Female

DRUGS (1)
  1. PREMARIN [Suspect]
     Route: 048
     Dates: start: 19840101

REACTIONS (1)
  - CEREBROVASCULAR ACCIDENT [None]
